FAERS Safety Report 7574982-3 (Version None)
Quarter: 2011Q2

REPORT INFORMATION
  Report Type: 
  Country: None (occurrence: None)
  Receive Date: 20110627
  Receipt Date: 20110623
  Transmission Date: 20111010
  Serious: Yes (Disabling)
  Sender: FDA-Public Use
  Company Number: GB-PFIZER INC-2011140681

PATIENT
  Age: 60 Year
  Sex: Female
  Weight: 75.4 kg

DRUGS (12)
  1. LEVOCETIRIZINE [Concomitant]
     Dosage: UNK
     Dates: start: 20110114
  2. AMLODIPINE [Concomitant]
     Dosage: UNK
     Dates: start: 20110114
  3. DOMPERIDONE [Concomitant]
     Dosage: UNK
     Dates: start: 20110308
  4. IBUPROFEN [Concomitant]
     Dosage: UNK
     Dates: start: 20110221
  5. QVAR 40 [Concomitant]
     Dosage: UNK
     Dates: start: 20110114
  6. TIOTROPIUM BROMIDE [Concomitant]
     Dosage: UNK
     Dates: start: 20110208, end: 20110310
  7. LISINOPRIL [Concomitant]
     Dosage: UNK
     Dates: start: 20110114
  8. SALBUTAMOL [Concomitant]
     Dosage: UNK
     Dates: start: 20110308
  9. VARENICLINE TARTRATE [Suspect]
     Dosage: UNK
     Dates: start: 20110308
  10. ACETAMINOPHEN AND CODEINE PHOSPHATE [Concomitant]
     Dosage: UNK
     Dates: start: 20110221, end: 20110323
  11. BETAMETHASONE SODIUM PHOSPHATE [Concomitant]
     Dosage: UNK
     Dates: start: 20110309, end: 20110314
  12. PANTOPRAZOLE [Concomitant]
     Dosage: UNK
     Dates: start: 20110114

REACTIONS (2)
  - DISTURBANCE IN SEXUAL AROUSAL [None]
  - PANIC ATTACK [None]
